FAERS Safety Report 18540943 (Version 2)
Quarter: 2021Q2

REPORT INFORMATION
  Report Type: Spontaneous
  Country: FR (occurrence: FR)
  Receive Date: 20201124
  Receipt Date: 20210401
  Transmission Date: 20210717
  Serious: Yes (Hospitalization, Other)
  Sender: FDA-Public Use
  Company Number: FR-JNJFOC-20201126870

PATIENT
  Age: 77 Year
  Sex: Male
  Weight: 97 kg

DRUGS (13)
  1. LASILIX [FUROSEMIDE] [Concomitant]
     Active Substance: FUROSEMIDE
     Dosage: 40 MG, BID 2 IN AM + 1 AT MIDDAY
     Dates: start: 20200924
  2. ATORVASTATIN [Concomitant]
     Active Substance: ATORVASTATIN
     Dosage: 40 MG, QD IN PM
  3. XARELTO [Suspect]
     Active Substance: RIVAROXABAN
     Indication: CEREBROVASCULAR ACCIDENT PROPHYLAXIS
     Dosage: 15 MG
     Route: 048
     Dates: start: 2017
  4. XARELTO [Suspect]
     Active Substance: RIVAROXABAN
     Indication: CARDIAC FIBRILLATION
     Route: 048
     Dates: start: 20200924
  5. KARDEGIC [Suspect]
     Active Substance: ASPIRIN DL-LYSINE
     Dosage: UNK
  6. VICTOZA [Concomitant]
     Active Substance: LIRAGLUTIDE
     Dosage: 1.8 ML, QD
     Dates: start: 20200924
  7. AMLOR [Concomitant]
     Active Substance: AMLODIPINE BESYLATE
     Dosage: 10 MG, QD IN AM
     Dates: start: 20200924
  8. TAHOR [Concomitant]
     Active Substance: ATORVASTATIN CALCIUM
     Dosage: 40 MG
     Dates: start: 20200924
  9. SECTRAL [Concomitant]
     Active Substance: ACEBUTOLOL HYDROCHLORIDE
     Dosage: 400 MG, BID IN AM + PM
     Dates: start: 20200924
  10. DIAMICRON [Concomitant]
     Active Substance: GLICLAZIDE
     Dosage: 2 DF, QD IN AM
     Dates: start: 20200924
  11. MACROGOL;POTASSIUM CHLORIDE;SODIUM BICARBONATE;SODIUM CHLORIDE [Concomitant]
     Active Substance: POLYETHYLENE GLYCOL\POTASSIUM CHLORIDE\SODIUM BICARBONATE\SODIUM CHLORIDE
     Dosage: UNK
     Dates: start: 20200924
  12. METFORMIN [Concomitant]
     Active Substance: METFORMIN HYDROCHLORIDE
     Dosage: 500 MG, BID IN AM + PM
     Dates: start: 20200924
  13. FUMAFER [Concomitant]
     Active Substance: FERROUS FUMARATE
     Dosage: 66 MG, TID
     Dates: start: 20200924

REACTIONS (20)
  - Fall [Unknown]
  - Hypochloraemia [Unknown]
  - Hypoproteinaemia [Unknown]
  - Head injury [Unknown]
  - Asthenia [Unknown]
  - General physical health deterioration [Unknown]
  - Weight decreased [Unknown]
  - Gastritis [Unknown]
  - Nausea [Unknown]
  - Eosinopenia [Unknown]
  - Orthostatic hypotension [Recovering/Resolving]
  - Blood calcium decreased [Unknown]
  - Melaena [Unknown]
  - Malnutrition [Unknown]
  - Anaemia macrocytic [Not Recovered/Not Resolved]
  - Decreased appetite [Unknown]
  - Diverticulitis [Unknown]
  - Lipase increased [Unknown]
  - Normochromic anaemia [Unknown]
  - Hypokalaemia [Unknown]

NARRATIVE: CASE EVENT DATE: 2020
